FAERS Safety Report 8496121-7 (Version None)
Quarter: 2012Q3

REPORT INFORMATION
  Report Type: 
  Country: None (occurrence: None)
  Receive Date: 20120709
  Receipt Date: 20120702
  Transmission Date: 20120928
  Serious: Yes (Hospitalization, Other)
  Sender: FDA-Public Use
  Company Number: US-MERCK-1107USA00202

PATIENT

DRUGS (6)
  1. FOSAMAX [Suspect]
     Indication: OSTEOPENIA
     Dosage: 70 MG, UNK
     Route: 048
     Dates: start: 19991116, end: 20080601
  2. FOSAMAX PLUS D [Suspect]
     Indication: OSTEOPENIA
     Dosage: 70 MG, UNK
     Route: 048
     Dates: start: 20080801, end: 20090701
  3. PREMPRO [Concomitant]
     Indication: MENOPAUSE
     Dates: start: 19970101, end: 20080901
  4. BONIVA [Suspect]
     Dates: start: 20080501, end: 20080601
  5. MK-9278 [Concomitant]
     Dates: start: 19910101
  6. FOSAMAX [Suspect]
     Dosage: 70 MG, UNK
     Route: 048
     Dates: start: 20080818, end: 20090919

REACTIONS (38)
  - PALPITATIONS [None]
  - HIATUS HERNIA [None]
  - LUNG NEOPLASM [None]
  - FEMUR FRACTURE [None]
  - IRRITABLE BOWEL SYNDROME [None]
  - OSTEOCHONDROMA [None]
  - BREAST CANCER IN SITU [None]
  - ANGINA PECTORIS [None]
  - LYMPHADENOPATHY [None]
  - GOITRE [None]
  - OSTEOPOROSIS POSTMENOPAUSAL [None]
  - GASTRITIS [None]
  - FALL [None]
  - BONE DISORDER [None]
  - PAIN [None]
  - BURSITIS [None]
  - ARTHRITIS [None]
  - CYSTITIS [None]
  - MYOCARDIAL INFARCTION [None]
  - TRICUSPID VALVE INCOMPETENCE [None]
  - CARDIAC DISORDER [None]
  - CHEST PAIN [None]
  - LIVER DISORDER [None]
  - BREAST CANCER [None]
  - ADVERSE DRUG REACTION [None]
  - FATIGUE [None]
  - GASTROOESOPHAGEAL REFLUX DISEASE [None]
  - OVARIAN FAILURE [None]
  - DYSLIPIDAEMIA [None]
  - COSTOCHONDRITIS [None]
  - OVERDOSE [None]
  - ARTHRALGIA [None]
  - SINUSITIS [None]
  - MALAISE [None]
  - JOINT SWELLING [None]
  - FOOT FRACTURE [None]
  - MITRAL VALVE PROLAPSE [None]
  - METABOLIC SYNDROME [None]
